FAERS Safety Report 9632907 (Version 1)
Quarter: 2013Q4

REPORT INFORMATION
  Report Type: Spontaneous
  Country: US (occurrence: US)
  Receive Date: 20131018
  Receipt Date: 20131018
  Transmission Date: 20140711
  Serious: Yes (Hospitalization)
  Sender: FDA-Public Use
  Company Number: US-ROCHE-1288913

PATIENT
  Sex: Male

DRUGS (6)
  1. TAMIFLU [Suspect]
     Indication: INFLUENZA
     Dosage: 1 PILL
     Route: 065
     Dates: start: 20131006
  2. TAMIFLU [Suspect]
     Dosage: 2 PILL
     Route: 065
     Dates: start: 20131007
  3. TAMIFLU [Suspect]
     Dosage: 2 PILL, TOTAL 5 PILL
     Route: 065
     Dates: start: 20131008
  4. PREDNISONE [Concomitant]
  5. ATARAX (UNITED STATES) [Concomitant]
  6. PERCOCET [Concomitant]

REACTIONS (8)
  - Local swelling [Unknown]
  - Local swelling [Unknown]
  - Local swelling [Unknown]
  - Blister [Recovering/Resolving]
  - Blister [Recovering/Resolving]
  - Blister [Recovering/Resolving]
  - Dry mouth [Unknown]
  - Gait disturbance [Unknown]
